FAERS Safety Report 16642465 (Version 4)
Quarter: 2019Q3

REPORT INFORMATION
  Report Type: Spontaneous
  Country: IN (occurrence: IN)
  Receive Date: 20190729
  Receipt Date: 20190903
  Transmission Date: 20191004
  Serious: Yes (Hospitalization, Other)
  Sender: FDA-Public Use
  Company Number: IN-MYLANLABS-2019M1060664

PATIENT
  Age: 14 Year
  Sex: Female
  Weight: 37.4 kg

DRUGS (12)
  1. CLOFAZIMINE [Suspect]
     Active Substance: CLOFAZIMINE
     Dosage: UNK
     Route: 065
     Dates: end: 20190825
  2. MOXIFLOXACIN. [Suspect]
     Active Substance: MOXIFLOXACIN
     Indication: PULMONARY TUBERCULOSIS
     Dosage: 600 MILLIGRAM, QD
     Route: 048
     Dates: start: 20190118, end: 20190723
  3. OMEPRAZOLE. [Concomitant]
     Active Substance: OMEPRAZOLE
     Indication: GASTRITIS
     Dosage: UNK
     Dates: start: 20190118
  4. BEDAQUILINE [Suspect]
     Active Substance: BEDAQUILINE
     Indication: PULMONARY TUBERCULOSIS
     Dosage: 200 MILLIGRAM, 3XW
     Route: 048
     Dates: start: 20190118, end: 20190723
  5. CLOFAZIMINE [Suspect]
     Active Substance: CLOFAZIMINE
     Indication: PULMONARY TUBERCULOSIS
     Dosage: 150 MILLIGRAM, QD
     Route: 048
     Dates: start: 20190118, end: 20190723
  6. ONDANSETRON [Concomitant]
     Active Substance: ONDANSETRON
     Indication: VOMITING
     Dosage: 8 MILLIGRAM
     Dates: start: 20190118
  7. DELAMANID [Suspect]
     Active Substance: DELAMANID
     Dosage: UNK
     Route: 065
     Dates: end: 20190825
  8. MOXIFLOXACIN. [Suspect]
     Active Substance: MOXIFLOXACIN
     Dosage: UNK
     Route: 065
     Dates: end: 20190825
  9. LINEZOLID. [Suspect]
     Active Substance: LINEZOLID
     Indication: PULMONARY TUBERCULOSIS
     Dosage: 600 MILLIGRAM, QD
     Route: 048
     Dates: start: 20190118, end: 20190524
  10. DELAMANID [Suspect]
     Active Substance: DELAMANID
     Indication: PULMONARY TUBERCULOSIS
     Dosage: 100 MILLIGRAM, BID
     Route: 048
     Dates: start: 20190118, end: 20190723
  11. BEDAQUILINE [Suspect]
     Active Substance: BEDAQUILINE
     Dosage: UNK
     Route: 065
     Dates: end: 20190825
  12. METOCLOPRAMIDE. [Concomitant]
     Active Substance: METOCLOPRAMIDE
     Indication: VOMITING
     Dosage: UNK
     Dates: start: 20190118

REACTIONS (9)
  - Neuropathy peripheral [Recovering/Resolving]
  - Anaemia [Not Recovered/Not Resolved]
  - Gastritis [Unknown]
  - Vomiting [Recovering/Resolving]
  - Lipase decreased [Not Recovered/Not Resolved]
  - Incorrect product administration duration [Unknown]
  - Ascites [Unknown]
  - Abdominal pain [Recovering/Resolving]
  - Abdominal lymphadenopathy [Unknown]

NARRATIVE: CASE EVENT DATE: 20190501
